FAERS Safety Report 4443440-7 (Version None)
Quarter: 2004Q3

REPORT INFORMATION
  Report Type: 
  Country: None (occurrence: None)
  Receive Date: 20040901
  Receipt Date: 20040823
  Transmission Date: 20050211
  Serious: Yes (Other)
  Sender: FDA-Public Use
  Company Number: HQWYE588425AUG04

PATIENT
  Sex: Female

DRUGS (2)
  1. PREMPRO [Suspect]
     Dosage: ORAL
     Route: 048
     Dates: start: 20000101, end: 20010101
  2. PREMARIN [Suspect]

REACTIONS (3)
  - ARTERIAL THROMBOSIS [None]
  - CEREBROVASCULAR ACCIDENT [None]
  - LEG AMPUTATION [None]
